FAERS Safety Report 12068279 (Version 1)
Quarter: 2016Q1

REPORT INFORMATION
  Report Type: Spontaneous
  Country: US (occurrence: US)
  Receive Date: 20160211
  Receipt Date: 20160211
  Transmission Date: 20160526
  Serious: Yes (Other)
  Sender: FDA-Public Use
  Company Number: US-APOTEX-2016AP006414

PATIENT
  Age: 6 Year

DRUGS (1)
  1. PAXIL [Suspect]
     Active Substance: PAROXETINE HYDROCHLORIDE
     Indication: PRODUCT USED FOR UNKNOWN INDICATION

REACTIONS (4)
  - Craniosynostosis [Unknown]
  - Haemangioma [Unknown]
  - Foetal exposure during pregnancy [Unknown]
  - Seizure [Unknown]

NARRATIVE: CASE EVENT DATE: 20080527
